FAERS Safety Report 7597950-4 (Version None)
Quarter: 2011Q3

REPORT INFORMATION
  Report Type: 
  Country: None (occurrence: None)
  Receive Date: 20110708
  Receipt Date: 20110701
  Transmission Date: 20111222
  Serious: Yes (Other)
  Sender: FDA-Public Use
  Company Number: US-CEPHALON-2011003503

PATIENT
  Sex: Female
  Weight: 91 kg

DRUGS (5)
  1. KLONOPIN [Concomitant]
  2. NUVIGIL [Suspect]
     Indication: NARCOLEPSY
     Route: 048
     Dates: start: 20110601
  3. LITHIUM [Concomitant]
     Dates: start: 19810101
  4. NORCO [Concomitant]
     Dates: start: 20110301
  5. XANAX [Concomitant]

REACTIONS (5)
  - NAUSEA [None]
  - DYSKINESIA [None]
  - ANXIETY [None]
  - MALAISE [None]
  - HEADACHE [None]
